FAERS Safety Report 7073897-7 (Version None)
Quarter: 2010Q4

REPORT INFORMATION
  Report Type: 
  Country: None (occurrence: None)
  Receive Date: 20101029
  Receipt Date: 20101020
  Transmission Date: 20110411
  Serious: Yes (Hospitalization)
  Sender: FDA-Public Use
  Company Number: DE-ABBOTT-10P-062-0635999-00

PATIENT
  Sex: Male
  Weight: 90 kg

DRUGS (8)
  1. HUMIRA [Suspect]
     Indication: PSORIATIC ARTHROPATHY
     Route: 058
     Dates: start: 20100301, end: 20100623
  2. BETA BLOCKER [Concomitant]
     Indication: PRODUCT USED FOR UNKNOWN INDICATION
  3. NEBIVOLOL [Concomitant]
     Indication: PRODUCT USED FOR UNKNOWN INDICATION
     Dosage: 2.5 MG OD
     Route: 048
     Dates: start: 20060601
  4. BLOPRESS 16/12.5MG [Concomitant]
     Indication: PRODUCT USED FOR UNKNOWN INDICATION
     Dosage: 0.5 TAB OD
     Route: 048
     Dates: start: 20060601
  5. ALLOPURINOL HEXAL [Concomitant]
     Indication: PRODUCT USED FOR UNKNOWN INDICATION
     Dosage: 100MG OD
     Route: 048
     Dates: start: 20060601
  6. VERAPAMIL [Concomitant]
     Indication: PRODUCT USED FOR UNKNOWN INDICATION
     Dosage: 120MG OD
     Route: 048
     Dates: start: 20100412, end: 20100701
  7. VERAPAMIL [Concomitant]
     Dosage: 120MG BID
     Route: 048
     Dates: start: 20100701
  8. PROCORALAN [Concomitant]
     Indication: PRODUCT USED FOR UNKNOWN INDICATION
     Dosage: 5MG OD
     Route: 048
     Dates: start: 20100902

REACTIONS (6)
  - ADVERSE EVENT [None]
  - ALOPECIA [None]
  - DERMATITIS EXFOLIATIVE [None]
  - OEDEMA [None]
  - RASH PUSTULAR [None]
  - SKIN HAEMORRHAGE [None]
